FAERS Safety Report 7488142-8 (Version None)
Quarter: 2011Q2

REPORT INFORMATION
  Report Type: 
  Country: None (occurrence: None)
  Receive Date: 20110518
  Receipt Date: 20110511
  Transmission Date: 20111010
  Serious: Yes (Other)
  Sender: FDA-Public Use
  Company Number: JP-ROCHE-773837

PATIENT
  Sex: Female

DRUGS (20)
  1. ACTEMRA [Suspect]
     Indication: RHEUMATOID ARTHRITIS
     Dosage: ROUTE::INTRAVENOUS DRIP DOSAGE IS UNCERTAIN.
     Route: 042
     Dates: start: 20090709, end: 20090709
  2. WARFARIN SODIUM [Concomitant]
  3. PYDOXAL [Concomitant]
  4. DIOVAN [Concomitant]
  5. PREDNISOLONE [Suspect]
     Route: 048
     Dates: start: 20091030
  6. OMEPRAL [Concomitant]
     Route: 048
  7. ACTEMRA [Suspect]
     Route: 042
     Dates: start: 20091001, end: 20091001
  8. ACTEMRA [Suspect]
     Route: 042
     Dates: start: 20091217, end: 20091217
  9. ACTEMRA [Suspect]
     Route: 042
     Dates: start: 20090806, end: 20090806
  10. ACTEMRA [Suspect]
     Route: 042
     Dates: start: 20090903, end: 20090903
  11. PREDNISOLONE [Suspect]
     Route: 048
     Dates: start: 20090724, end: 20091029
  12. CELECOXIB [Concomitant]
     Route: 048
  13. CLARITHROMYCIN [Concomitant]
  14. ESPO [Concomitant]
     Route: 058
  15. PREDNISOLONE [Suspect]
     Indication: RHEUMATOID ARTHRITIS
     Route: 048
     Dates: end: 20090723
  16. NORVASC [Concomitant]
     Route: 048
  17. ACTEMRA [Suspect]
     Route: 042
     Dates: start: 20091029, end: 20091029
  18. ACTEMRA [Suspect]
     Dosage: DOSAGE WAS UNCERTAIN
     Route: 042
     Dates: start: 20100121
  19. BAKTAR [Concomitant]
  20. METHYCOBAL [Concomitant]

REACTIONS (1)
  - EMBOLIC CEREBRAL INFARCTION [None]
